FAERS Safety Report 6716549-2 (Version None)
Quarter: 2010Q2

REPORT INFORMATION
  Report Type: 
  Country: None (occurrence: None)
  Receive Date: 20100507
  Receipt Date: 20100427
  Transmission Date: 20101027
  Serious: Yes (Other)
  Sender: FDA-Public Use
  Company Number: DE-ELI_LILLY_AND_COMPANY-DE201004008022

PATIENT
  Age: 26 Year
  Sex: Male

DRUGS (4)
  1. ZYPREXA [Suspect]
     Indication: PSYCHOTIC DISORDER
     Dosage: UNK, UNKNOWN
  2. RISPERDAL [Concomitant]
  3. INVEGA [Concomitant]
  4. CELEBREX [Concomitant]

REACTIONS (3)
  - HALLUCINATION, AUDITORY [None]
  - HYPERSOMNIA [None]
  - LOSS OF CONSCIOUSNESS [None]
